FAERS Safety Report 9826946 (Version 2)
Quarter: 2014Q1

REPORT INFORMATION
  Report Type: Spontaneous
  Country: US (occurrence: US)
  Receive Date: 20140117
  Receipt Date: 20140117
  Transmission Date: 20141002
  Serious: Yes (Hospitalization)
  Sender: FDA-Public Use
  Company Number: US-BAXTER-2014BAX001523

PATIENT
  Age: 52 Year
  Sex: Male

DRUGS (5)
  1. DIANEAL LOW CALCIUM [Suspect]
     Indication: RENAL FAILURE CHRONIC
     Route: 033
     Dates: start: 20120214
  2. DIANEAL LOW CALCIUM [Suspect]
     Route: 033
     Dates: start: 20120214
  3. DIANEAL LOW CALCIUM [Suspect]
     Indication: RENAL FAILURE CHRONIC
     Route: 033
     Dates: start: 20120214
  4. DIANEAL LOW CALCIUM [Suspect]
     Route: 033
     Dates: start: 20120214
  5. EXTRANEAL [Suspect]
     Indication: RENAL FAILURE CHRONIC
     Route: 033
     Dates: start: 201303

REACTIONS (3)
  - Atrial fibrillation [Recovering/Resolving]
  - Cerebrovascular accident [Recovering/Resolving]
  - Convulsion [Recovering/Resolving]
